FAERS Safety Report 16172620 (Version 1)
Quarter: 2019Q2

REPORT INFORMATION
  Report Type: Report from Study
  Country: US (occurrence: US)
  Receive Date: 20190409
  Receipt Date: 20190409
  Transmission Date: 20190711
  Serious: Yes (Disabling, Other)
  Sender: FDA-Public Use
  Company Number: US-SA-2019SA042811

PATIENT
  Age: 62 Year
  Sex: Male

DRUGS (2)
  1. INSULIN GLARGINE [Suspect]
     Active Substance: INSULIN GLARGINE
     Dosage: 130 U, QD
     Route: 058
     Dates: start: 2003
  2. INSULIN GLARGINE [Suspect]
     Active Substance: INSULIN GLARGINE
     Indication: TYPE 2 DIABETES MELLITUS
     Dosage: 100 UNITS ONCE DAILY IN THE AFTERNOON AND 30 UNITS ONCE NIGHTLY, BID
     Route: 058
     Dates: start: 2003

REACTIONS (9)
  - Limb injury [Not Recovered/Not Resolved]
  - Gait inability [Not Recovered/Not Resolved]
  - Back injury [Not Recovered/Not Resolved]
  - Product dose omission [Unknown]
  - Blood glucose increased [Not Recovered/Not Resolved]
  - Inappropriate schedule of product administration [Unknown]
  - Road traffic accident [Unknown]
  - Joint injury [Not Recovered/Not Resolved]
  - Disability [Unknown]

NARRATIVE: CASE EVENT DATE: 20161025
